FAERS Safety Report 14257463 (Version 1)
Quarter: 2017Q4

REPORT INFORMATION
  Report Type: Spontaneous
  Country: FR (occurrence: FR)
  Receive Date: 20171207
  Receipt Date: 20171207
  Transmission Date: 20180321
  Serious: Yes (Other)
  Sender: FDA-Public Use
  Company Number: FR-MERCK KGAA-2036864

PATIENT
  Age: 74 Year
  Sex: Female

DRUGS (8)
  1. OROCAL (LEKOVIT CA) [Concomitant]
  2. NOVOTHYROX [Suspect]
     Active Substance: LEVOTHYROXINE SODIUM
     Dates: start: 2017
  3. SOTALEX [Concomitant]
     Active Substance: SOTALOL
  4. NOVOTHYROX [Suspect]
     Active Substance: LEVOTHYROXINE SODIUM
     Indication: POST PROCEDURAL HYPOTHYROIDISM
     Dates: start: 201704
  5. INIPOMP [Concomitant]
     Active Substance: PANTOPRAZOLE SODIUM
  6. KARDEGIC [Suspect]
     Active Substance: ASPIRIN DL-LYSINE
  7. VASTAREL [Concomitant]
     Active Substance: TRIMETAZIDINE DIHYDROCHLORIDE
  8. CAPTEA(CAPOZIDE) [Concomitant]

REACTIONS (9)
  - Hyperthyroidism [None]
  - Weight decreased [None]
  - Dizziness [None]
  - Blood pressure increased [None]
  - Insomnia [None]
  - Pain [None]
  - Decreased appetite [None]
  - Blood thyroid stimulating hormone increased [None]
  - Headache [None]

NARRATIVE: CASE EVENT DATE: 2017
